FAERS Safety Report 10044314 (Version 1)
Quarter: 2014Q1

REPORT INFORMATION
  Report Type: Spontaneous
  Country: US (occurrence: None)
  Receive Date: 20140306
  Receipt Date: 20140306
  Transmission Date: 20141002
  Serious: Yes (Hospitalization)
  Sender: FDA-Public Use
  Company Number: 163-21880-13070830

PATIENT
  Age: 60 Year
  Sex: Male

DRUGS (9)
  1. REVLIMID [Suspect]
     Indication: PLASMA CELL MYELOMA
     Dosage: 1 IN 1 D
     Route: 048
     Dates: start: 20130408
  2. PROTONIX (PANTOPRAZOLE SODIUM) [Concomitant]
  3. TYLENOL (PARACETAMOL) [Concomitant]
  4. DEXAMETHASONE [Concomitant]
  5. NIACIN (NICOTINIC ACID) [Concomitant]
  6. METOPROLOL SUCCINATE [Concomitant]
  7. ATORVASTATIN CALCIUM [Concomitant]
  8. MVI [Concomitant]
  9. CALCIUM CITRATE [Concomitant]

REACTIONS (1)
  - Pneumonia [None]
